FAERS Safety Report 14569235 (Version 1)
Quarter: 2018Q1

REPORT INFORMATION
  Report Type: Spontaneous
  Country: US (occurrence: US)
  Receive Date: 20180223
  Receipt Date: 20180223
  Transmission Date: 20180509
  Serious: No
  Sender: FDA-Public Use
  Company Number: None

PATIENT
  Sex: Male
  Weight: 104.33 kg

DRUGS (3)
  1. GEODON [Concomitant]
     Active Substance: ZIPRASIDONE HYDROCHLORIDE\ZIPRASIDONE MESYLATE
  2. ABILIFY [Concomitant]
     Active Substance: ARIPIPRAZOLE
  3. GEODON [Suspect]
     Active Substance: ZIPRASIDONE HYDROCHLORIDE\ZIPRASIDONE MESYLATE
     Indication: MENTAL DISORDER
     Dosage: 30 TABLET(S) IN THE MORNING TAKEN BY MOUTH
     Route: 048
     Dates: start: 20130105, end: 20140105

REACTIONS (6)
  - Drug ineffective [None]
  - Amnesia [None]
  - Brain injury [None]
  - Feeling abnormal [None]
  - Therapy change [None]
  - Headache [None]

NARRATIVE: CASE EVENT DATE: 20170303
